FAERS Safety Report 4825240-9 (Version None)
Quarter: 2005Q4

REPORT INFORMATION
  Report Type: 
  Country: None (occurrence: None)
  Receive Date: 20051109
  Receipt Date: 20051109
  Transmission Date: 20060501
  Serious: No
  Sender: FDA-Public Use
  Company Number: None

PATIENT
  Sex: Female

DRUGS (1)
  1. APROTININ [Suspect]
     Indication: MITRAL VALVE REPAIR
     Dosage: 200 ML   ONCE   IV DRIP
     Route: 041
     Dates: start: 20050824, end: 20050824

REACTIONS (5)
  - ANAEMIA [None]
  - HAEMATURIA [None]
  - HAEMORRHAGE [None]
  - RENAL IMPAIRMENT [None]
  - THROMBOCYTOPENIA [None]
